FAERS Safety Report 7726689-7 (Version None)
Quarter: 2011Q3

REPORT INFORMATION
  Report Type: 
  Country: None (occurrence: None)
  Receive Date: 20110902
  Receipt Date: 20110902
  Transmission Date: 20111222
  Serious: No
  Sender: FDA-Public Use
  Company Number: None

PATIENT
  Age: 49 Year
  Sex: Female
  Weight: 39.916 kg

DRUGS (1)
  1. ORACEA [Suspect]
     Indication: ROSACEA
     Dosage: 40MG
     Route: 048
     Dates: start: 20100830, end: 20110812

REACTIONS (2)
  - DERMATITIS EXFOLIATIVE [None]
  - ACTIVITIES OF DAILY LIVING IMPAIRED [None]
